FAERS Safety Report 4900114-3 (Version None)
Quarter: 2006Q1

REPORT INFORMATION
  Report Type: 
  Country: None (occurrence: None)
  Receive Date: 20060201
  Receipt Date: 20060116
  Transmission Date: 20060701
  Serious: Yes (Hospitalization, Other)
  Sender: FDA-Public Use
  Company Number: USA050494898

PATIENT
  Age: 84 Year
  Sex: Female
  Weight: 79.8331 kg

DRUGS (13)
  1. FORTEO [Suspect]
     Indication: OSTEOPOROSIS
     Dosage: 20 UG DAILY (1/D) SUBCUTANEOUS
     Route: 058
     Dates: start: 20050315
  2. EVISTA [Suspect]
  3. PROPOXYPHENE HCL AND ACETAMINOPHEN [Concomitant]
  4. ZOCORO (SIMVASTATIN) [Concomitant]
  5. ACIPHEX [Concomitant]
  6. VASOTEC [Concomitant]
  7. POTASSIUM CHLORIDE [Concomitant]
  8. ALLEGRA [Concomitant]
  9. OSCAL (CALCIUM CARBONATE) [Concomitant]
  10. DETROL [Concomitant]
  11. PLAVIX [Concomitant]
  12. NORVASC [Concomitant]
  13. FORTEO PEN (FORTEO PEN) [Concomitant]

REACTIONS (17)
  - ASTHENIA [None]
  - BALANCE DISORDER [None]
  - BRADYCARDIA [None]
  - CONTUSION [None]
  - COUGH [None]
  - DYSPNOEA [None]
  - ELECTRIC SHOCK [None]
  - EXCORIATION [None]
  - FALL [None]
  - HEAD INJURY [None]
  - IATROGENIC INJURY [None]
  - IMPLANTABLE DEFIBRILLATOR MALFUNCTION [None]
  - LISTLESS [None]
  - PAIN [None]
  - PHARMACEUTICAL PRODUCT COMPLAINT [None]
  - SHOULDER PAIN [None]
  - VERTIGO [None]
